FAERS Safety Report 16030386 (Version 2)
Quarter: 2019Q1

REPORT INFORMATION
  Report Type: Report from Study
  Country: None (occurrence: AU)
  Receive Date: 20190304
  Receipt Date: 20190307
  Transmission Date: 20190418
  Serious: Yes (Hospitalization, Other)
  Sender: FDA-Public Use
  Company Number: AU-ABBVIE-19K-008-2681068-00

PATIENT
  Sex: Male

DRUGS (1)
  1. HUMIRA [Suspect]
     Active Substance: ADALIMUMAB
     Indication: RHEUMATOID ARTHRITIS
     Route: 058
     Dates: start: 2013

REACTIONS (6)
  - Pain [Unknown]
  - Ear neoplasm [Unknown]
  - Cerebral fungal infection [Unknown]
  - Thrombosis [Unknown]
  - General physical health deterioration [Unknown]
  - Drug ineffective [Unknown]
